FAERS Safety Report 9780875 (Version 2)
Quarter: 2014Q1

REPORT INFORMATION
  Report Type: Spontaneous
  Country: US (occurrence: US)
  Receive Date: 20131224
  Receipt Date: 20140123
  Transmission Date: 20141002
  Serious: Yes (Other)
  Sender: FDA-Public Use
  Company Number: PHEH2013US026144

PATIENT
  Sex: Male

DRUGS (3)
  1. TEGRETOL [Suspect]
     Dosage: 400 MG, BID
  2. KEPPRA [Suspect]
     Dosage: UNK UKN, UNK
  3. DILANTIN//PHENYTOIN [Suspect]
     Dosage: UNK UKN, UNK

REACTIONS (4)
  - Convulsion [Unknown]
  - Malaise [Unknown]
  - Stress [Unknown]
  - Diarrhoea [Unknown]
